FAERS Safety Report 9276447 (Version 2)
Quarter: 2013Q2

REPORT INFORMATION
  Report Type: Spontaneous
  Country: US (occurrence: US)
  Receive Date: 20130507
  Receipt Date: 20130604
  Transmission Date: 20140414
  Serious: No
  Sender: FDA-Public Use
  Company Number: US-009507513-1305USA002903

PATIENT
  Age: 34 Year
  Sex: Female
  Weight: 63.49 kg

DRUGS (3)
  1. CLARITIN REDITABS 12HR [Suspect]
     Indication: HYPERSENSITIVITY
     Dosage: 5 MG, QD
     Route: 048
     Dates: start: 20130301, end: 20130304
  2. CLARITIN REDITABS 12HR [Suspect]
     Indication: RHINORRHOEA
  3. CLARITIN REDITABS 12HR [Suspect]
     Indication: SNEEZING

REACTIONS (2)
  - Drug ineffective [Unknown]
  - Underdose [Unknown]
